FAERS Safety Report 6255837-3 (Version None)
Quarter: 2009Q3

REPORT INFORMATION
  Report Type: 
  Country: None (occurrence: None)
  Receive Date: 20090703
  Receipt Date: 20090625
  Transmission Date: 20100115
  Serious: No
  Sender: FDA-Public Use
  Company Number: JP-ELI_LILLY_AND_COMPANY-JP200905004129

PATIENT
  Sex: Female

DRUGS (5)
  1. EVISTA [Suspect]
     Indication: OSTEOPOROSIS
     Dosage: 60 MG, DAILY (1/D)
     Route: 048
     Dates: start: 20070811, end: 20090515
  2. ARTZ [Concomitant]
     Indication: OSTEOARTHRITIS
     Dosage: UNK, WEEKLY (1/W)
     Route: 014
     Dates: start: 19940725
  3. ELCITONIN [Concomitant]
     Indication: PAIN
     Dosage: UNK, WEEKLY (1/W)
     Route: 065
  4. SUVENYL [Concomitant]
     Indication: PERIARTHRITIS
     Dosage: UNK, WEEKLY (1/W)
     Route: 014
     Dates: start: 20080115
  5. XYLOCAINE [Concomitant]
     Indication: PERIARTHRITIS
     Dosage: UNK, WEEKLY (1/W)
     Route: 014
     Dates: start: 20080115

REACTIONS (1)
  - DEEP VEIN THROMBOSIS [None]
